FAERS Safety Report 14120058 (Version 3)
Quarter: 2018Q2

REPORT INFORMATION
  Report Type: Spontaneous
  Country: US (occurrence: US)
  Receive Date: 20171024
  Receipt Date: 20180416
  Transmission Date: 20180711
  Serious: Yes (Hospitalization, Other)
  Sender: FDA-Public Use
  Company Number: US-PFIZER INC-2017046644

PATIENT
  Age: 59 Year
  Sex: Female
  Weight: 83 kg

DRUGS (2)
  1. REVATIO [Suspect]
     Active Substance: SILDENAFIL CITRATE
     Indication: PULMONARY ARTERIAL HYPERTENSION
     Dosage: 60 MG, 3X/DAY (THREE 20 MG; IN THE MORNING, AFTERNOON AND BEDTIME)
     Route: 048
     Dates: start: 2009
  2. OXYGEN. [Concomitant]
     Active Substance: OXYGEN
     Dosage: UNK

REACTIONS (13)
  - Road traffic accident [Recovered/Resolved with Sequelae]
  - Osteonecrosis [Not Recovered/Not Resolved]
  - Upper limb fracture [Not Recovered/Not Resolved]
  - Memory impairment [Not Recovered/Not Resolved]
  - Confusional state [Recovered/Resolved]
  - Foot fracture [Not Recovered/Not Resolved]
  - Limb injury [Not Recovered/Not Resolved]
  - Coma [Recovered/Resolved]
  - Product use issue [Unknown]
  - Ankle fracture [Not Recovered/Not Resolved]
  - Hallucination [Recovered/Resolved]
  - Cervical vertebral fracture [Not Recovered/Not Resolved]
  - Head injury [Recovered/Resolved]

NARRATIVE: CASE EVENT DATE: 2009
